FAERS Safety Report 5752976-8 (Version None)
Quarter: 2008Q2

REPORT INFORMATION
  Report Type: 
  Country: None (occurrence: None)
  Receive Date: 20080527
  Receipt Date: 20080516
  Transmission Date: 20081010
  Serious: Yes (Death, Life-Threatening, Other)
  Sender: FDA-Public Use
  Company Number: 2008035218

PATIENT
  Age: 66 Year
  Sex: Male
  Weight: 108 kg

DRUGS (17)
  1. FRAGMIN [Suspect]
     Dosage: 7500 I.U. (2500 I.U.), INTRAVENOUS
     Route: 042
     Dates: start: 20080418
  2. LOVENOX [Concomitant]
  3. CACIT (CALCIUM CARBONATE, CITRIC ACID) [Concomitant]
  4. AMIODARONE HCL [Concomitant]
  5. DEDROGYL (CALCIFEDIOL) [Concomitant]
  6. LANTHANUM CARBONATE (LANTHANUM CARBONATE) [Concomitant]
  7. LANTUS [Concomitant]
  8. NOVORAPID (INSULIN ASPART) [Concomitant]
  9. PLAVIX [Concomitant]
  10. ALFACALCIDOL (ALFACALCIDOL) [Concomitant]
  11. ZOCOR [Concomitant]
  12. FOLIC ACID [Concomitant]
  13. EPOETIN BETA (EPOETIN BETA) [Concomitant]
  14. IRON (IRON) [Concomitant]
  15. BECILAN (PYRIDOXINE HYDROCHLORIDE) [Concomitant]
  16. BEVITINE (THIAMINE HYDROCHLORIDE) [Concomitant]
  17. SODIUM POLYSTYRENE SULFONATE (SODIUM POLYSTYRENE SULFONATE) [Concomitant]

REACTIONS (7)
  - ANAPHYLACTIC SHOCK [None]
  - ATRIAL FIBRILLATION [None]
  - CARDIAC ARREST [None]
  - CARDIAC FAILURE [None]
  - DRUG ERUPTION [None]
  - INFARCTION [None]
  - MALAISE [None]
